FAERS Safety Report 13069980 (Version 1)
Quarter: 2016Q4

REPORT INFORMATION
  Report Type: Spontaneous
  Country: US (occurrence: US)
  Receive Date: 20161228
  Receipt Date: 20161228
  Transmission Date: 20170207
  Serious: No
  Sender: FDA-Public Use
  Company Number: US-GLAXOSMITHKLINE-US2016GSK192090

PATIENT
  Age: 70 Year
  Sex: Female

DRUGS (1)
  1. TANZEUM [Suspect]
     Active Substance: ALBIGLUTIDE
     Indication: TYPE 2 DIABETES MELLITUS
     Dosage: 50 MG, WE
     Route: 042
     Dates: start: 20161205

REACTIONS (8)
  - Blood glucose increased [Unknown]
  - Device leakage [Unknown]
  - Diarrhoea [Unknown]
  - Accidental exposure to product [Unknown]
  - Device use error [Unknown]
  - Wrong technique in product usage process [Unknown]
  - Constipation [Unknown]
  - Underdose [Unknown]

NARRATIVE: CASE EVENT DATE: 20161205
